FAERS Safety Report 12163513 (Version 1)
Quarter: 2016Q1

REPORT INFORMATION
  Report Type: Spontaneous
  Country: IN (occurrence: IN)
  Receive Date: 20160309
  Receipt Date: 20160309
  Transmission Date: 20160526
  Serious: Yes (Life-Threatening, Hospitalization)
  Sender: FDA-Public Use
  Company Number: IN-SA-2016SA009622

PATIENT
  Age: 25 Year
  Sex: Male

DRUGS (4)
  1. ISONIAZID. [Suspect]
     Active Substance: ISONIAZID
     Indication: BONE TUBERCULOSIS
     Route: 065
  2. RIFAMPICIN [Suspect]
     Active Substance: RIFAMPIN
     Indication: BONE TUBERCULOSIS
     Route: 065
  3. RIFAMPICIN [Suspect]
     Active Substance: RIFAMPIN
     Indication: BONE TUBERCULOSIS
     Dosage: MORE THAN 18 G?MORE THAN 40 TABLETS
     Route: 048
  4. ISONIAZID. [Suspect]
     Active Substance: ISONIAZID
     Indication: BONE TUBERCULOSIS
     Dosage: MORE THAN 12 G?MORE THAN 40 TABLETS
     Route: 048

REACTIONS (21)
  - Blood creatine phosphokinase increased [Recovering/Resolving]
  - Seizure [Recovering/Resolving]
  - Generalised tonic-clonic seizure [Recovering/Resolving]
  - Nausea [Recovering/Resolving]
  - Red man syndrome [Recovering/Resolving]
  - Dyspnoea [Recovering/Resolving]
  - Irritability [Recovering/Resolving]
  - Hepatotoxicity [Recovering/Resolving]
  - Chromaturia [Recovering/Resolving]
  - Overdose [Unknown]
  - Coma [Recovered/Resolved]
  - Restlessness [Recovering/Resolving]
  - Tachycardia [Recovering/Resolving]
  - Jaundice [Recovering/Resolving]
  - Altered state of consciousness [Recovering/Resolving]
  - Faeces discoloured [Recovering/Resolving]
  - Crepitations [Recovering/Resolving]
  - Rhabdomyolysis [Recovering/Resolving]
  - Metabolic acidosis [Recovering/Resolving]
  - Vomiting [Recovering/Resolving]
  - Tachypnoea [Recovering/Resolving]
